FAERS Safety Report 9009027 (Version 1)
Quarter: 2013Q1

REPORT INFORMATION
  Report Type: Spontaneous
  Country: IQ (occurrence: IQ)
  Receive Date: 20130111
  Receipt Date: 20130111
  Transmission Date: 20140127
  Serious: Yes (Death, Hospitalization)
  Sender: FDA-Public Use
  Company Number: IQ-BAYER-2013-003523

PATIENT
  Age: 60 Year
  Sex: Female

DRUGS (6)
  1. ACETYLSALICYLIC ACID({=100 MG) [Suspect]
     Indication: LACUNAR INFARCTION
     Route: 048
  2. CLOPIDOGREL [Suspect]
     Indication: LACUNAR INFARCTION
     Route: 048
  3. ENALAPRIL [Concomitant]
     Indication: HYPERTENSION
     Route: 048
  4. METOPROLOL [Concomitant]
     Indication: HYPERTENSION
     Route: 048
  5. ATORVASTATIN [Concomitant]
     Indication: HYPERTENSION
  6. ATORVASTATIN [Concomitant]
     Indication: HYPERTENSION
     Dosage: 40 MG/DAY

REACTIONS (1)
  - Thalamus haemorrhage [Fatal]
